FAERS Safety Report 10018287 (Version 1)
Quarter: 2014Q1

REPORT INFORMATION
  Report Type: Spontaneous
  Country: US (occurrence: US)
  Receive Date: 20140318
  Receipt Date: 20140318
  Transmission Date: 20141002
  Serious: Yes (Other)
  Sender: FDA-Public Use
  Company Number: US-BRISTOL-MYERS SQUIBB COMPANY-19881481

PATIENT
  Age: 5 Decade
  Sex: Male

DRUGS (1)
  1. ERBITUX [Suspect]
     Indication: RENAL CANCER

REACTIONS (5)
  - Flushing [Unknown]
  - Erythema [Unknown]
  - Dyspnoea [Unknown]
  - Chest pain [Unknown]
  - Blood pressure decreased [Unknown]
